FAERS Safety Report 16091278 (Version 2)
Quarter: 2019Q1

REPORT INFORMATION
  Report Type: Spontaneous
  Country: JP (occurrence: JP)
  Receive Date: 20190319
  Receipt Date: 20190321
  Transmission Date: 20190418
  Serious: Yes (Other)
  Sender: FDA-Public Use
  Company Number: JP-ALLERGAN-1911817US

PATIENT
  Sex: Male

DRUGS (3)
  1. ACICLOVIR [Suspect]
     Active Substance: ACYCLOVIR
     Indication: HERPES ZOSTER MENINGOENCEPHALITIS
     Dosage: UNK
     Route: 041
  2. UBRETID [Concomitant]
     Active Substance: DISTIGMINE BROMIDE
     Indication: URINARY RETENTION
     Dosage: UNK
     Route: 048
  3. SILODOSIN - BP [Suspect]
     Active Substance: SILODOSIN
     Indication: URINARY RETENTION
     Dosage: 8 MG, QD
     Route: 048

REACTIONS (2)
  - Renal impairment [Unknown]
  - Platelet count decreased [Unknown]

NARRATIVE: CASE EVENT DATE: 20190313
